FAERS Safety Report 23484059 (Version 11)
Quarter: 2024Q3

REPORT INFORMATION
  Report Type: Report from Study
  Country: PT (occurrence: PT)
  Receive Date: 20240205
  Receipt Date: 20240702
  Transmission Date: 20241017
  Serious: Yes (Other)
  Sender: ABBVIE
  Company Number: PT-ABBVIE-5615715

PATIENT
  Age: 73 Year
  Sex: Male

DRUGS (20)
  1. CARBIDOPA\LEVODOPA [Suspect]
     Active Substance: CARBIDOPA\LEVODOPA
     Indication: Parkinson^s disease
     Dosage: 20 MG + 5 MG ?FREQUENCY TEXT: MORN:9CC;MAINT:5.2CC/H;EXTR:3CC?LAST ADMIN DATE- DEC 2023
     Route: 050
     Dates: start: 20231215
  2. CARBIDOPA\LEVODOPA [Suspect]
     Active Substance: CARBIDOPA\LEVODOPA
     Dosage: 20 MG + 5 MG ?FREQUENCY TEXT: MORN:13.5CC;MAINT:5.7CC/H;EXTR:3.5CC
     Route: 050
     Dates: start: 20240126, end: 20240129
  3. CARBIDOPA\LEVODOPA [Suspect]
     Active Substance: CARBIDOPA\LEVODOPA
     Dosage: 20 MG + 5 MG (GASTRIC)?FREQUENCY TEXT: MORN:13.5CC;MAINT:5.7CC/H;EXTR:3.5CC
     Route: 050
     Dates: start: 20240129, end: 20240202
  4. CARBIDOPA\LEVODOPA [Suspect]
     Active Substance: CARBIDOPA\LEVODOPA
     Dosage: 20 MG + 5 MG (GASTRIC)?FREQUENCY TEXT: MORN:14.5CC;MAINT:5.7CC/H;EXTR:4CC
     Route: 050
     Dates: start: 20240202, end: 20240214
  5. CARBIDOPA\LEVODOPA [Suspect]
     Active Substance: CARBIDOPA\LEVODOPA
     Dosage: 20 MG + 5 MG (GASTRIC) FREQUENCY TEXT: MORN:15.5CC;MAINT:5.7CC/H;EXTR:5.9CC PRODUCT/THERAPY END D...
     Route: 050
     Dates: start: 20240306
  6. CARBIDOPA\LEVODOPA [Suspect]
     Active Substance: CARBIDOPA\LEVODOPA
     Dosage: 20 MG + 5 MG (VIA NJ), ?FREQUENCY TEXT: MORN:8CC;MAINT:4CC/H;EXTR:1CC, FIRST ADMIN DATE-DEC 2023
     Route: 050
     Dates: start: 202312
  7. CARBIDOPA\LEVODOPA [Suspect]
     Active Substance: CARBIDOPA\LEVODOPA
     Dosage: 20 MG + 5 MG
     Route: 050
     Dates: start: 20240410, end: 20240531
  8. CARBIDOPA\LEVODOPA [Suspect]
     Active Substance: CARBIDOPA\LEVODOPA
     Dosage: 20 MG + 5 MG (GASTRIC), ?FREQUENCY TEXT:MORN:14.5CC;MAINT:5.7CC/H;EXTR:5.9CC?DOSE INCREASED
     Route: 050
     Dates: start: 20240214, end: 20240306
  9. CARBIDOPA\LEVODOPA [Suspect]
     Active Substance: CARBIDOPA\LEVODOPA
     Dosage: 20 MG + 5 MG (GASTRIC)  FREQUENCY TEXT:15.5CC;MAINT:6.1CC/H;EXTR:5.9CC ?DOSE INCREASED, FIRST ADM...
     Route: 050
     Dates: start: 202403, end: 20240410
  10. CARBIDOPA\LEVODOPA [Suspect]
     Active Substance: CARBIDOPA\LEVODOPA
     Dosage: 20 MG + 5 MG
     Route: 050
     Dates: start: 20240611, end: 20240617
  11. CARBIDOPA\LEVODOPA [Suspect]
     Active Substance: CARBIDOPA\LEVODOPA
     Dosage: 20 MG + 5 MG?MORN:16.5CC;MAINT:6.4CC/H;EXTR:5.9CC
     Route: 050
     Dates: start: 20240611, end: 20240617
  12. CARBIDOPA\LEVODOPA [Suspect]
     Active Substance: CARBIDOPA\LEVODOPA
     Dosage: 20 MG + 5 MG MORN:15.5CC;MAINT:6.4CC/H;EXTR:5.9CC
     Route: 050
     Dates: start: 20240531, end: 20240611
  13. CARBIDOPA\LEVODOPA [Suspect]
     Active Substance: CARBIDOPA\LEVODOPA
     Dosage: 20 MG + 5 MG?MORN:16.5CC;MAINT:6.7CC/H;EXTR:4.5CC
     Route: 050
     Dates: start: 20240617
  14. CARBIDOPA\LEVODOPA [Suspect]
     Active Substance: CARBIDOPA\LEVODOPA
     Dosage: 20 MG + 5 MG (GASTRIC)
     Route: 050
     Dates: start: 202403, end: 202403
  15. CARBIDOPA\LEVODOPA [Suspect]
     Active Substance: CARBIDOPA\LEVODOPA
     Dosage: 20 MG + 5 MG?DOSE INCREASED?20 MG + 5 MG MORN:15.5CC;MAINT:6.1CC/H;EXTR:5.9CC
     Route: 050
     Dates: start: 20240410, end: 20240531
  16. BISACODYL [Concomitant]
     Active Substance: BISACODYL
     Indication: Product used for unknown indication
     Dosage: 1 TABLET?START DATE TEXT: BEFORE DUODOPA?FORM STRENGTH: 5 MILLIGRAM
     Route: 048
  17. AMOXICILLIN\CLAVULANIC ACID [Concomitant]
     Active Substance: AMOXICILLIN\CLAVULANIC ACID
     Indication: Blister
     Dates: start: 202401, end: 202402
  18. RIVASTIGMINE TARTRATE [Concomitant]
     Active Substance: RIVASTIGMINE TARTRATE
     Indication: Product used for unknown indication
     Dosage: RIVASTIGMINA TD 9.5?START DATE TEXT: BEFORE DUODOPA
     Route: 062
  19. MIRTAZAPINE [Concomitant]
     Active Substance: MIRTAZAPINE
     Indication: Product used for unknown indication
     Dosage: 1 TABLET?FORM STRENGTH: 15 MILLIGRAM?FREQUENCY TEXT: AT BEDTIME?START DATE TEXT: BEFORE DUODOPA
     Route: 048
  20. QUETIAPINE [Concomitant]
     Active Substance: QUETIAPINE
     Indication: Product used for unknown indication
     Dosage: 0.5 TABLET?FORM STRENGTH: 100 MILLIGRAM?FREQUENCY TEXT: AT BEDTIME?START DATE TEXT: BEFORE DUODOPA
     Route: 048

REACTIONS (16)
  - Blister infected [Recovered/Resolved]
  - Stoma site inflammation [Recovered/Resolved]
  - Stoma site discharge [Recovered/Resolved]
  - Skin ulcer [Recovered/Resolved]
  - Balance disorder [Not Recovered/Not Resolved]
  - Wound complication [Not Recovered/Not Resolved]
  - Thermal burn [Recovered/Resolved]
  - Salivary hypersecretion [Not Recovered/Not Resolved]
  - Mobility decreased [Not Recovered/Not Resolved]
  - Blister rupture [Recovering/Resolving]
  - Stoma site erythema [Recovered/Resolved]
  - Fall [Recovered/Resolved]
  - Wound complication [Recovered/Resolved]
  - Bradykinesia [Recovering/Resolving]
  - Inflammation of wound [Recovered/Resolved]
  - Purulence [Recovered/Resolved]

NARRATIVE: CASE EVENT DATE: 20240101
